FAERS Safety Report 26122237 (Version 1)
Quarter: 2025Q4

REPORT INFORMATION
  Report Type: Spontaneous
  Country: US (occurrence: US)
  Receive Date: 20251204
  Receipt Date: 20251204
  Transmission Date: 20260117
  Serious: No
  Sender: NEUROCRINE BIOSCIENCES
  Company Number: US-NBI-NBI-US-5769-2025

PATIENT
  Sex: Female

DRUGS (2)
  1. CRENESSITY [Suspect]
     Active Substance: CRINECERFONT
     Indication: Product used for unknown indication
     Dosage: 50 MILLIGRAM, UNK
     Route: 065
  2. CRENESSITY [Suspect]
     Active Substance: CRINECERFONT
     Dosage: 100 MILLIGRAM, UNK
     Route: 065

REACTIONS (2)
  - Nausea [Not Recovered/Not Resolved]
  - Vomiting [Not Recovered/Not Resolved]
